FAERS Safety Report 7136973-6 (Version None)
Quarter: 2010Q4

REPORT INFORMATION
  Report Type: 
  Country: None (occurrence: None)
  Receive Date: 20101115
  Receipt Date: 20101105
  Transmission Date: 20110411
  Serious: Yes (Other)
  Sender: FDA-Public Use
  Company Number: THYM-1000983

PATIENT
  Age: 16 Year
  Sex: Male
  Weight: 49 kg

DRUGS (11)
  1. THYMOGLOBULIN [Suspect]
     Indication: STEM CELL TRANSPLANT
     Dosage: 120 MG, QD, INTRAVENOUS
     Route: 042
     Dates: start: 20090313, end: 20090316
  2. METHOTREXATE [Suspect]
     Indication: APLASTIC ANAEMIA
     Dosage: 15 MG, QD, 11 MG, QD
     Dates: start: 20090319, end: 20090319
  3. METHOTREXATE [Suspect]
     Indication: APLASTIC ANAEMIA
     Dosage: 15 MG, QD, 11 MG, QD
     Dates: start: 20090321, end: 20090321
  4. CYCLOPHOSPHAMIDE [Concomitant]
  5. METHYLPREDNISOLONE [Concomitant]
  6. CEFEPIME HYDROCHLORIDE [Concomitant]
  7. SULFAMETHOXAZOL MED TRIMETOPRIM (SULFAMETHOXAZOLE, TRIMETHOPIUM) [Concomitant]
  8. ACICLOVIR (ACICLOVIR SODIUM) [Concomitant]
  9. MICAFUNGIN SODIUM (MICAFUNGIN SODIUM) [Concomitant]
  10. FLUCONAZOLE [Concomitant]
  11. MEROPENEM [Concomitant]

REACTIONS (7)
  - ALANINE AMINOTRANSFERASE INCREASED [None]
  - ASPARTATE AMINOTRANSFERASE INCREASED [None]
  - BLOOD BILIRUBIN INCREASED [None]
  - CHIMERISM [None]
  - LIVER DISORDER [None]
  - PYREXIA [None]
  - STEM CELL TRANSPLANT [None]
